FAERS Safety Report 4642827-7 (Version None)
Quarter: 2005Q2

REPORT INFORMATION
  Report Type: 
  Country: None (occurrence: None)
  Receive Date: 20050421
  Receipt Date: 20050405
  Transmission Date: 20051028
  Serious: Yes (Hospitalization)
  Sender: FDA-Public Use
  Company Number: SGBI-2005-00164

PATIENT
  Age: 66 Year
  Sex: Male

DRUGS (2)
  1. LANTHANUM CARBONATE VS PLACEBO (LANTHANUM CARBONATE VS PLACEBO) TABLET [Suspect]
     Indication: HYPERPHOSPHATAEMIA
     Dosage: ORAL
     Route: 048
     Dates: start: 20050222
  2. SENNA ALEXANDRIA LEAF (SENNA ALEXANDRIA LEAF) [Concomitant]

REACTIONS (2)
  - COLONIC POLYP [None]
  - CONSTIPATION [None]
